FAERS Safety Report 18160279 (Version 2)
Quarter: 2020Q3

REPORT INFORMATION
  Report Type: Spontaneous
  Country: US (occurrence: US)
  Receive Date: 20200817
  Receipt Date: 20200821
  Transmission Date: 20201103
  Serious: Yes (Hospitalization)
  Sender: FDA-Public Use
  Company Number: NVSC2020US227103

PATIENT
  Age: 60 Year
  Sex: Male

DRUGS (9)
  1. ARGATROBAN. [Suspect]
     Active Substance: ARGATROBAN
     Indication: ATRIAL FIBRILLATION
  2. ARGATROBAN. [Suspect]
     Active Substance: ARGATROBAN
     Indication: CARDIAC VENTRICULAR THROMBOSIS
     Dosage: UNK
     Route: 065
  3. EPTIFIBATIDE. [Suspect]
     Active Substance: EPTIFIBATIDE
     Indication: VASCULAR STENT THROMBOSIS
     Dosage: 180 MG/KG, QD
     Route: 040
  4. TICAGRELOR. [Concomitant]
     Active Substance: TICAGRELOR
     Indication: PRODUCT USED FOR UNKNOWN INDICATION
     Dosage: UNK
     Route: 065
  5. EPTIFIBATIDE. [Suspect]
     Active Substance: EPTIFIBATIDE
     Dosage: 2 MG/KG
     Route: 041
  6. CEFEPIME DIHYDROCHLORIDE [Concomitant]
     Active Substance: CEFEPIME HYDROCHLORIDE
     Indication: PRODUCT USED FOR UNKNOWN INDICATION
     Dosage: UNK
     Route: 065
  7. ACETYLSALICYLIC ACID [Concomitant]
     Active Substance: ASPIRIN
     Indication: PRODUCT USED FOR UNKNOWN INDICATION
     Dosage: UNK
     Route: 065
  8. CEFTRIAXONE SODIUM. [Concomitant]
     Active Substance: CEFTRIAXONE SODIUM
     Indication: PRODUCT USED FOR UNKNOWN INDICATION
     Dosage: UNK
     Route: 065
  9. VANCOMYCIN [Concomitant]
     Active Substance: VANCOMYCIN
     Indication: PRODUCT USED FOR UNKNOWN INDICATION
     Dosage: UNK
     Route: 065

REACTIONS (3)
  - Deep vein thrombosis [Recovering/Resolving]
  - Venous thrombosis limb [Recovering/Resolving]
  - Off label use [Unknown]
